FAERS Safety Report 7607084-8 (Version None)
Quarter: 2011Q3

REPORT INFORMATION
  Report Type: 
  Country: None (occurrence: None)
  Receive Date: 20110706
  Receipt Date: 20110622
  Transmission Date: 20111222
  Serious: Yes (Hospitalization)
  Sender: FDA-Public Use
  Company Number: 2011PL000083

PATIENT
  Age: 74 Year
  Sex: Female
  Weight: 47.1741 kg

DRUGS (4)
  1. LISINOPRIL [Concomitant]
  2. PREDNISONE [Concomitant]
  3. GLYBURIDE [Concomitant]
  4. LOTRONEX [Suspect]
     Indication: DIARRHOEA
     Dosage: 1 MG;BID;PO
     Route: 048
     Dates: start: 20110101

REACTIONS (3)
  - RENAL FAILURE [None]
  - DIARRHOEA [None]
  - DEHYDRATION [None]
